FAERS Safety Report 16872711 (Version 3)
Quarter: 2019Q4

REPORT INFORMATION
  Report Type: Spontaneous
  Country: FR (occurrence: FR)
  Receive Date: 20191001
  Receipt Date: 20191231
  Transmission Date: 20200122
  Serious: Yes (Hospitalization, Other)
  Sender: FDA-Public Use
  Company Number: FR-MYLANLABS-2019M1091262

PATIENT
  Age: 46 Year
  Sex: Female

DRUGS (3)
  1. CYPROTERONE [Suspect]
     Active Substance: CYPROTERONE
     Indication: ANDROGENETIC ALOPECIA
     Dosage: UNK
  2. ESTRADIOL. [Suspect]
     Active Substance: ESTRADIOL
     Indication: HORMONE THERAPY
     Dosage: UNK
     Route: 065
  3. CYPROTERONE [Suspect]
     Active Substance: CYPROTERONE
     Indication: HORMONE REPLACEMENT THERAPY
     Dosage: 50 MILLIGRAM, QD
     Route: 048

REACTIONS (3)
  - Meningioma [Recovered/Resolved]
  - Ischaemic stroke [Recovered/Resolved]
  - Paraesthesia [Recovered/Resolved]
